FAERS Safety Report 11179754 (Version 1)
Quarter: 2015Q2

REPORT INFORMATION
  Report Type: Spontaneous
  Country: US (occurrence: None)
  Receive Date: 20150609
  Receipt Date: 20150609
  Transmission Date: 20150821
  Serious: Yes (Other)
  Sender: FDA-Public Use
  Company Number: None

PATIENT
  Age: 70 Year
  Sex: Female
  Weight: 74.84 kg

DRUGS (4)
  1. SYNTHROID [Concomitant]
     Active Substance: LEVOTHYROXINE SODIUM
  2. ZALEPLON. [Suspect]
     Active Substance: ZALEPLON
     Indication: INSOMNIA
     Dosage: 1 NIGHTLY AS NEEDED TAKEN BY MOUTH
     Route: 048
     Dates: start: 20131015, end: 20150115
  3. MULTIVITAMIN [Concomitant]
     Active Substance: VITAMINS
  4. MINERAL [Concomitant]

REACTIONS (3)
  - Product quality issue [None]
  - Product substitution issue [None]
  - Urticaria [None]

NARRATIVE: CASE EVENT DATE: 20131015
